FAERS Safety Report 11909637 (Version 1)
Quarter: 2016Q1

REPORT INFORMATION
  Report Type: Spontaneous
  Country: US (occurrence: US)
  Receive Date: 20160112
  Receipt Date: 20160112
  Transmission Date: 20160526
  Serious: Yes (Other)
  Sender: FDA-Public Use
  Company Number: US-TEVA-623344ACC

PATIENT
  Sex: Female
  Weight: 72.3 kg

DRUGS (1)
  1. PARAGARD T 380A [Suspect]
     Active Substance: COPPER
     Indication: CONTRACEPTION
     Dates: start: 20150228

REACTIONS (5)
  - Uterine perforation [Unknown]
  - Muscle spasms [Recovering/Resolving]
  - Device adhesion issue [Unknown]
  - Menorrhagia [Recovering/Resolving]
  - Back pain [Unknown]
